FAERS Safety Report 25874942 (Version 2)
Quarter: 2025Q4

REPORT INFORMATION
  Report Type: Spontaneous
  Country: EU (occurrence: EU)
  Receive Date: 20251002
  Receipt Date: 20251016
  Transmission Date: 20260118
  Serious: No
  Sender: AMGEN
  Company Number: EU-AMGEN-POLSP2025190808

PATIENT
  Sex: Male

DRUGS (1)
  1. NPLATE [Suspect]
     Active Substance: ROMIPLOSTIM
     Indication: Product used for unknown indication
     Dosage: UNK (2 MICROGRAM PER KILOGRAM)
     Route: 065
     Dates: start: 20250409

REACTIONS (1)
  - Platelet count abnormal [Unknown]

NARRATIVE: CASE EVENT DATE: 20250915
